FAERS Safety Report 18380330 (Version 1)
Quarter: 2020Q4

REPORT INFORMATION
  Report Type: Not Available
  Country: US (occurrence: US)
  Receive Date: 20201014
  Receipt Date: 20201014
  Transmission Date: 20210114
  Serious: No
  Sender: FDA-Public Use
  Company Number: US-NEUROCRINE BIOSCIENCES INC.-2020NBI03628

PATIENT
  Age: 31 Year
  Sex: Male

DRUGS (6)
  1. BUPROPION. [Concomitant]
     Active Substance: BUPROPION
  2. BACLOFEN. [Concomitant]
     Active Substance: BACLOFEN
  3. DULOXETINE. [Concomitant]
     Active Substance: DULOXETINE
  4. CETIRIZINE [Concomitant]
     Active Substance: CETIRIZINE HYDROCHLORIDE
  5. INGREZZA [Suspect]
     Active Substance: VALBENAZINE
     Route: 048
     Dates: start: 20200925
  6. INGREZZA [Suspect]
     Active Substance: VALBENAZINE
     Indication: TARDIVE DYSKINESIA
     Route: 048
     Dates: start: 20200826, end: 20200924

REACTIONS (2)
  - Formication [Recovered/Resolved]
  - Restlessness [Recovered/Resolved]
